FAERS Safety Report 7624009-X (Version None)
Quarter: 2011Q3

REPORT INFORMATION
  Report Type: 
  Country: None (occurrence: None)
  Receive Date: 20110720
  Receipt Date: 20110713
  Transmission Date: 20111222
  Serious: No
  Sender: FDA-Public Use
  Company Number: US-PFIZER INC-2011158908

PATIENT
  Sex: Female
  Weight: 77.1 kg

DRUGS (8)
  1. SOMA [Concomitant]
     Indication: BACK PAIN
     Dosage: UNK
  2. AMITIZA [Concomitant]
     Dosage: UNK
  3. MACROBID [Concomitant]
     Dosage: UNK
  4. SYNTHROID [Concomitant]
     Indication: THYROID DISORDER
     Dosage: UNK
  5. XANAX [Concomitant]
     Dosage: UNK
  6. PRILOSEC [Concomitant]
     Dosage: UNK
  7. RELISTOR [Suspect]
     Indication: CONSTIPATION
     Dosage: UNK
     Route: 058
     Dates: start: 20110301, end: 20110401
  8. SOMA [Concomitant]
     Indication: SPINAL CORD INJURY

REACTIONS (1)
  - ABDOMINAL PAIN [None]
